FAERS Safety Report 19194093 (Version 1)
Quarter: 2021Q2

REPORT INFORMATION
  Report Type: Spontaneous
  Country: GR (occurrence: GR)
  Receive Date: 20210429
  Receipt Date: 20210429
  Transmission Date: 20210717
  Serious: Yes (Other)
  Sender: FDA-Public Use
  Company Number: GR-BAUSCH-BL-2021-014105

PATIENT
  Age: 37 Year
  Sex: Male

DRUGS (2)
  1. BRIMONIDINE [Concomitant]
     Active Substance: BRIMONIDINE TARTRATE
     Indication: OCULAR HYPERTENSION
  2. DORZOLAMIDE HCL/TIMOLOL MALEATE [Suspect]
     Active Substance: DORZOLAMIDE HYDROCHLORIDE\TIMOLOL MALEATE
     Indication: OCULAR HYPERTENSION
     Route: 047

REACTIONS (5)
  - Balance disorder [Unknown]
  - Sinus bradycardia [Unknown]
  - Drug ineffective [Unknown]
  - Syncope [Unknown]
  - Dizziness [Unknown]
